FAERS Safety Report 10377650 (Version 1)
Quarter: 2014Q3

REPORT INFORMATION
  Report Type: Spontaneous
  Country: US (occurrence: None)
  Receive Date: 20140811
  Receipt Date: 20140811
  Transmission Date: 20150326
  Serious: Yes (Hospitalization)
  Sender: FDA-Public Use
  Company Number: None

PATIENT
  Sex: Male

DRUGS (5)
  1. CEFDINIR. [Concomitant]
     Active Substance: CEFDINIR
  2. CIPRO [Suspect]
     Active Substance: CIPROFLOXACIN HYDROCHLORIDE
     Indication: OTITIS MEDIA
     Dosage: 6ML  BID  X 10DAYS
  3. AMOXIL [Concomitant]
     Active Substance: AMOXICILLIN
  4. CIPRO [Suspect]
     Active Substance: CIPROFLOXACIN HYDROCHLORIDE
     Indication: OTORRHOEA
     Dosage: 6ML  BID  X 10DAYS
  5. CIPRO [Suspect]
     Active Substance: CIPROFLOXACIN HYDROCHLORIDE
     Indication: STAPHYLOCOCCAL INFECTION
     Dosage: 6ML  BID  X 10DAYS

REACTIONS (1)
  - Treatment failure [None]

NARRATIVE: CASE EVENT DATE: 2012
